FAERS Safety Report 20551018 (Version 4)
Quarter: 2022Q4

REPORT INFORMATION
  Report Type: Report from Study
  Country: CA (occurrence: CA)
  Receive Date: 20220304
  Receipt Date: 20221208
  Transmission Date: 20230112
  Serious: Yes (Hospitalization, Other)
  Sender: FDA-Public Use
  Company Number: CA-NOVARTISPH-NVSC2022CA047507

PATIENT
  Age: 7 Year
  Sex: Female
  Weight: 19.2 kg

DRUGS (4)
  1. TRAMETINIB [Suspect]
     Active Substance: TRAMETINIB
     Indication: Langerhans^ cell histiocytosis
     Dosage: 0.55 MG, QD
     Route: 048
     Dates: start: 20181118, end: 20220215
  2. TRAMETINIB [Suspect]
     Active Substance: TRAMETINIB
     Indication: Langerhans^ cell histiocytosis
     Dosage: 90 MG (40 MG QAM AND 50 MG QPM)
     Route: 048
     Dates: start: 20181118, end: 20220215
  3. DESMOPRESSIN [Concomitant]
     Active Substance: DESMOPRESSIN
     Indication: Product used for unknown indication
     Dosage: 15 UG, QD
     Route: 065
     Dates: start: 20180412
  4. PAMIDRONATE [Concomitant]
     Active Substance: PAMIDRONATE DISODIUM
     Indication: Product used for unknown indication
     Dosage: UNK
     Route: 065

REACTIONS (3)
  - Hypercalcaemia [Unknown]
  - Tubulointerstitial nephritis [Not Recovered/Not Resolved]
  - Glomerular filtration rate decreased [Unknown]

NARRATIVE: CASE EVENT DATE: 20210401
